FAERS Safety Report 5674081-1 (Version None)
Quarter: 2008Q2

REPORT INFORMATION
  Report Type: 
  Country: None (occurrence: None)
  Receive Date: 20080227
  Receipt Date: 20070516
  Transmission Date: 20081010
  Serious: Yes (Other)
  Sender: FDA-Public Use
  Company Number: HQWYE251117MAY07

PATIENT
  Age: 39 Year
  Sex: Female

DRUGS (6)
  1. EFFEXOR [Suspect]
     Indication: DEPRESSION
     Dates: start: 20070413, end: 20070415
  2. EFFEXOR [Suspect]
     Indication: DEPRESSION
     Dates: start: 20070428
  3. REBIF [Suspect]
     Indication: MULTIPLE SCLEROSIS
     Dosage: SUBCUTANEOUS INJECTIONS THREE TIMES PER WEEK*, SUBCUTANEOUS ; 44 UG 3X PER 1 WK, SUBCUTANEOUS
     Route: 058
     Dates: start: 20070104, end: 20070201
  4. REBIF [Suspect]
     Indication: MULTIPLE SCLEROSIS
     Dosage: SUBCUTANEOUS INJECTIONS THREE TIMES PER WEEK*, SUBCUTANEOUS ; 44 UG 3X PER 1 WK, SUBCUTANEOUS
     Route: 058
     Dates: start: 20070201, end: 20070416
  5. LORAZEPAM [Concomitant]
  6. NADOLOL [Concomitant]

REACTIONS (5)
  - DYSPNOEA [None]
  - ERYTHEMA [None]
  - HYPERSENSITIVITY [None]
  - RASH GENERALISED [None]
  - SWELLING FACE [None]
